FAERS Safety Report 18644558 (Version 5)
Quarter: 2022Q1

REPORT INFORMATION
  Report Type: Report from Study
  Country: DE (occurrence: DE)
  Receive Date: 20201221
  Receipt Date: 20220321
  Transmission Date: 20220423
  Serious: Yes (Death, Hospitalization, Other)
  Sender: FDA-Public Use
  Company Number: DE-JNJFOC-20200721822

PATIENT
  Age: 10 Decade
  Sex: Male

DRUGS (11)
  1. METHOTREXATE [Suspect]
     Active Substance: METHOTREXATE
     Indication: Rheumatoid arthritis
     Dosage: 20 MILLIGRAM, QW
     Route: 065
  2. METHOTREXATE [Suspect]
     Active Substance: METHOTREXATE
     Dosage: 15 MILLIGRAM, QW
     Route: 065
     Dates: start: 202007
  3. SIMPONI [Suspect]
     Active Substance: GOLIMUMAB
     Indication: Rheumatoid arthritis
     Dosage: 50 MILLIGRAM, Q28D
     Route: 058
     Dates: start: 201911, end: 20200710
  4. METOPROLOL [Concomitant]
     Active Substance: METOPROLOL
     Dosage: UNK
  5. ASPIRIN [Concomitant]
     Active Substance: ASPIRIN
     Dosage: UNK
  6. FOLIC ACID [Concomitant]
     Active Substance: FOLIC ACID
     Dosage: UNK
  7. PREDNISONE [Concomitant]
     Active Substance: PREDNISONE
     Dosage: UNK
  8. DEKRISTOL NEU [Concomitant]
     Dosage: UNK
  9. METAMIZOLE [Concomitant]
     Active Substance: METAMIZOLE
     Dosage: UNK
  10. ATORVASTATIN [Concomitant]
     Active Substance: ATORVASTATIN
     Dosage: UNK
  11. PREDNISOLONE [Concomitant]
     Active Substance: PREDNISOLONE
     Dosage: UNK

REACTIONS (13)
  - Bronchial carcinoma [Fatal]
  - Left ventricular hypertrophy [Unknown]
  - Mitral valve stenosis [Unknown]
  - Haematoma [Recovered/Resolved]
  - Rheumatoid arthritis [Recovered/Resolved]
  - Synovial cyst [Not Recovered/Not Resolved]
  - Thyroid neoplasm [Not Recovered/Not Resolved]
  - Mitral valve incompetence [Unknown]
  - Cholelithiasis [Unknown]
  - Benign prostatic hyperplasia [Unknown]
  - Diverticulum [Unknown]
  - Large intestine polyp [Unknown]
  - Osteoporosis [Unknown]

NARRATIVE: CASE EVENT DATE: 20200515
